FAERS Safety Report 13162191 (Version 1)
Quarter: 2017Q1

REPORT INFORMATION
  Report Type: Spontaneous
  Country: US (occurrence: US)
  Receive Date: 20170130
  Receipt Date: 20170130
  Transmission Date: 20170428
  Serious: No
  Sender: FDA-Public Use
  Company Number: US-PFIZER INC-2017038811

PATIENT
  Sex: Female

DRUGS (2)
  1. XELJANZ [Suspect]
     Active Substance: TOFACITINIB CITRATE
     Dosage: 5 MG, ONCE A DAY
  2. XELJANZ [Suspect]
     Active Substance: TOFACITINIB CITRATE
     Dosage: 5 MG, TWICE A DAY

REACTIONS (11)
  - Musculoskeletal pain [Unknown]
  - Fatigue [Unknown]
  - Insomnia [Unknown]
  - Back pain [Unknown]
  - Swelling [Unknown]
  - Pain [Unknown]
  - Musculoskeletal stiffness [Unknown]
  - Sleep disorder [Unknown]
  - Arthralgia [Unknown]
  - Pain in extremity [Unknown]
  - Activities of daily living impaired [Unknown]
